FAERS Safety Report 10747661 (Version 1)
Quarter: 2015Q1

REPORT INFORMATION
  Report Type: Report from Study
  Country: US (occurrence: None)
  Receive Date: 20150120
  Receipt Date: 20150120
  Transmission Date: 20150721
  Serious: No
  Sender: FDA-Public Use
  Company Number: AEGR000980

PATIENT
  Age: 47 Year
  Sex: Male
  Weight: 97.1 kg

DRUGS (9)
  1. LASIX [Concomitant]
     Active Substance: FUROSEMIDE
  2. COUMADIN [Concomitant]
     Active Substance: WARFARIN SODIUM
  3. JUXTAPID [Suspect]
     Active Substance: LOMITAPIDE MESYLATE
     Indication: TYPE IIA HYPERLIPIDAEMIA
     Route: 048
     Dates: start: 20140716
  4. COREG [Concomitant]
     Active Substance: CARVEDILOL
  5. LIPITOR [Suspect]
     Active Substance: ATORVASTATIN CALCIUM
  6. JUXTAPID [Suspect]
     Active Substance: LOMITAPIDE MESYLATE
     Route: 048
     Dates: start: 20140716
  7. IMDUR [Concomitant]
     Active Substance: ISOSORBIDE MONONITRATE
  8. VASOTEC [Concomitant]
     Active Substance: ENALAPRIL MALEATE
  9. FLEXERIL [Concomitant]
     Active Substance: CYCLOBENZAPRINE HYDROCHLORIDE

REACTIONS (1)
  - Abdominal pain [None]

NARRATIVE: CASE EVENT DATE: 201411
